FAERS Safety Report 5159725-5 (Version None)
Quarter: 2006Q4

REPORT INFORMATION
  Report Type: 
  Country: None (occurrence: None)
  Receive Date: 20061129
  Receipt Date: 20051005
  Transmission Date: 20070319
  Serious: No
  Sender: FDA-Public Use
  Company Number: 2005-03748

PATIENT
  Age: 62 Year
  Sex: Female
  Weight: 90 kg

DRUGS (1)
  1. BUPROPION HCL [Suspect]
     Dosage: 150MG TWICE PER DAY
     Route: 048

REACTIONS (1)
  - NICOTINE DEPENDENCE [None]
